FAERS Safety Report 21195708 (Version 2)
Quarter: 2022Q3

REPORT INFORMATION
  Report Type: Spontaneous
  Country: US (occurrence: US)
  Receive Date: 20220810
  Receipt Date: 20220914
  Transmission Date: 20221027
  Serious: No
  Sender: FDA-Public Use
  Company Number: US-PFIZER INC-202201046032

PATIENT
  Age: 78 Year
  Sex: Female
  Weight: 48.073 kg

DRUGS (3)
  1. PAXLOVID [Suspect]
     Active Substance: NIRMATRELVIR\RITONAVIR
     Indication: COVID-19 treatment
     Dosage: 3 DF, 2X/DAY (3 TABS FROM YELLOW SIDE-MORNING, 3 TABS FROM BLUE-EVENING)
     Dates: start: 20220420, end: 20220424
  2. PROMETHAZINE - DEXTROMETHORPHANE [Concomitant]
     Dosage: UNK (6.25-15 MG/5 ML SYRUP)
     Dates: start: 20220420, end: 2022
  3. ONDANSETRON [Concomitant]
     Active Substance: ONDANSETRON
     Dosage: 4 MG

REACTIONS (3)
  - Tenderness [Recovered/Resolved]
  - COVID-19 [Recovered/Resolved]
  - Disease recurrence [Recovered/Resolved]

NARRATIVE: CASE EVENT DATE: 20220401
